FAERS Safety Report 17144584 (Version 2)
Quarter: 2021Q4

REPORT INFORMATION
  Report Type: Report from Study
  Country: US (occurrence: US)
  Receive Date: 20191212
  Receipt Date: 20211123
  Transmission Date: 20220303
  Serious: No
  Sender: FDA-Public Use
  Company Number: US-NOVARTISTESTPH-NVSC2019US064903

PATIENT
  Age: 13 Year
  Sex: Female
  Weight: 85.8 kg

DRUGS (7)
  1. PIQRAY [Suspect]
     Active Substance: ALPELISIB
     Indication: PIK3CA related overgrowth spectrum
     Dosage: 50 MG
     Route: 048
     Dates: start: 20191030
  2. DOXYCYCLINE [Concomitant]
     Active Substance: DOXYCYCLINE
     Indication: Acne
     Dosage: 100 MG, BID (MONDAY TO FRIDAY)
     Route: 048
     Dates: start: 20210716
  3. DOXYCYCLINE [Concomitant]
     Active Substance: DOXYCYCLINE
     Dosage: 100 MG, BID (MONDAY TO FRIDAY)
     Route: 065
     Dates: start: 20210105
  4. BACTRIM [Concomitant]
     Active Substance: SULFAMETHOXAZOLE\TRIMETHOPRIM
     Indication: Product used for unknown indication
     Dosage: 160 MG, BIW (BID, 2 DAYS A WEEK))
     Route: 048
  5. TYLENOL [Concomitant]
     Active Substance: ACETAMINOPHEN
     Indication: Product used for unknown indication
     Dosage: UNK
     Route: 065
  6. NORCO [Concomitant]
     Active Substance: ACETAMINOPHEN\HYDROCODONE BITARTRATE
     Indication: Product used for unknown indication
     Dosage: UNK, (1-2 TABLETS PO BID)
     Route: 048
  7. MIRALAX [Concomitant]
     Active Substance: POLYETHYLENE GLYCOL 3350
     Indication: Product used for unknown indication
     Dosage: 17 G, TID
     Route: 065

REACTIONS (22)
  - Viral upper respiratory tract infection [Recovered/Resolved]
  - Respiratory tract congestion [Recovered/Resolved]
  - Rhinorrhoea [Recovered/Resolved]
  - Headache [Recovered/Resolved]
  - Chest pain [Recovered/Resolved]
  - Headache [Not Recovered/Not Resolved]
  - Swelling face [Recovering/Resolving]
  - Oropharyngeal pain [Recovered/Resolved]
  - Ear pain [Recovered/Resolved]
  - Facial pain [Recovered/Resolved]
  - Cerumen impaction [Recovered/Resolved]
  - Facial pain [Recovered/Resolved]
  - Nausea [Recovered/Resolved]
  - Mouth ulceration [Recovered/Resolved]
  - Stomatitis [Recovered/Resolved]
  - Facial pain [Recovered/Resolved]
  - Constipation [Recovering/Resolving]
  - Pyrexia [Recovered/Resolved]
  - Mucosal inflammation [Recovered/Resolved]
  - Facial pain [Recovering/Resolving]
  - Mouth ulceration [Recovered/Resolved]
  - Menstruation irregular [Not Recovered/Not Resolved]

NARRATIVE: CASE EVENT DATE: 20191101
